FAERS Safety Report 5958718-5 (Version None)
Quarter: 2008Q4

REPORT INFORMATION
  Report Type: 
  Country: None (occurrence: None)
  Receive Date: 20081119
  Receipt Date: 20081119
  Transmission Date: 20090506
  Serious: Yes (Disabling)
  Sender: FDA-Public Use
  Company Number: BR-B.I. PHARMACEUTICALS,INC./RIDGEFIELD-2008-BR-00335BR

PATIENT
  Age: 71 Year
  Sex: Female

DRUGS (5)
  1. SPIRIVA [Suspect]
     Indication: DYSPNOEA
     Route: 055
     Dates: start: 20060101
  2. ALENIA [Concomitant]
  3. FORASEQ [Concomitant]
  4. MIFLONID [Concomitant]
  5. AMINOFILINA [Concomitant]

REACTIONS (1)
  - DRUG INEFFECTIVE [None]
